FAERS Safety Report 10088845 (Version 1)
Quarter: 2014Q2

REPORT INFORMATION
  Report Type: Report from Study
  Country: CA (occurrence: CA)
  Receive Date: 20140421
  Receipt Date: 20140421
  Transmission Date: 20141212
  Serious: Yes (Other)
  Sender: FDA-Public Use
  Company Number: CA-JNJFOC-20140411628

PATIENT
  Age: 66 Year
  Sex: Male
  Weight: 89.9 kg

DRUGS (9)
  1. REMICADE [Suspect]
     Indication: CROHN^S DISEASE
     Route: 042
     Dates: start: 20121030
  2. AVAPRO [Concomitant]
     Route: 065
  3. ASA [Concomitant]
     Route: 065
  4. TECTA [Concomitant]
     Route: 065
  5. DIAZEPAM [Concomitant]
     Route: 065
  6. LIPITOR [Concomitant]
     Route: 065
  7. IRON [Concomitant]
     Route: 065
  8. VITAMIN B6 [Concomitant]
     Route: 065
  9. INSULIN [Concomitant]
     Route: 065

REACTIONS (1)
  - Nephrolithiasis [Unknown]
